FAERS Safety Report 23884213 (Version 2)
Quarter: 2024Q2

REPORT INFORMATION
  Report Type: Spontaneous
  Country: ES (occurrence: ES)
  Receive Date: 20240522
  Receipt Date: 20240607
  Transmission Date: 20240716
  Serious: Yes (Other)
  Sender: FDA-Public Use
  Company Number: ES-TEVA-VS-3200306

PATIENT
  Age: 57 Year
  Sex: Male

DRUGS (7)
  1. ACITRETIN [Suspect]
     Active Substance: ACITRETIN
     Indication: Pemphigus
     Route: 065
  2. PREDNISONE [Suspect]
     Active Substance: PREDNISONE
     Indication: Pemphigus
     Dosage: 1 MG/KG/BODY WEIGHT/DAY
     Route: 065
  3. METHOTREXATE [Suspect]
     Active Substance: METHOTREXATE
     Indication: Pemphigus
     Route: 065
  4. DAPSONE [Suspect]
     Active Substance: DAPSONE
     Indication: Pemphigus
     Route: 065
  5. ISOTRETINOIN [Suspect]
     Active Substance: ISOTRETINOIN
     Indication: Pemphigus
     Route: 065
  6. MYCOPHENOLATE MOFETIL [Suspect]
     Active Substance: MYCOPHENOLATE MOFETIL
     Indication: Pemphigus
     Route: 065
  7. RITUXIMAB [Suspect]
     Active Substance: RITUXIMAB
     Indication: Pemphigus
     Dosage: 1G AT TWO WEEK INTERVALS (2?INFUSIONS)
     Route: 065

REACTIONS (3)
  - Haemolysis [Recovered/Resolved]
  - Methaemoglobinaemia [Recovered/Resolved]
  - Drug ineffective [Unknown]
